FAERS Safety Report 5620298-1 (Version None)
Quarter: 2008Q1

REPORT INFORMATION
  Report Type: 
  Country: None (occurrence: None)
  Receive Date: 20080208
  Receipt Date: 20080204
  Transmission Date: 20080703
  Serious: Yes (Death)
  Sender: FDA-Public Use
  Company Number: PHRM2008FR00671

PATIENT
  Age: 49 Year
  Sex: Male
  Weight: 70 kg

DRUGS (8)
  1. GLEEVEC [Suspect]
     Indication: ACUTE LYMPHOCYTIC LEUKAEMIA
     Dosage: 800 MG DAILY
     Route: 048
     Dates: start: 20071228
  2. IDARUBICIN HCL [Suspect]
  3. VINCRISTINE [Suspect]
  4. ENDOXAN [Suspect]
  5. UROMITEXAN [Suspect]
  6. SOLU-MEDROL [Suspect]
     Dosage: 100 MG DAILY
  7. METHOTREXATE [Suspect]
     Route: 037
  8. ARACYTIN [Suspect]

REACTIONS (9)
  - ASPERGILLOSIS [None]
  - BACTERIAL INFECTION [None]
  - COMPUTERISED TOMOGRAM ABNORMAL [None]
  - FUNGUS SEROLOGY TEST POSITIVE [None]
  - GENERAL PHYSICAL HEALTH DETERIORATION [None]
  - PULMONARY HAEMORRHAGE [None]
  - PYREXIA [None]
  - SEVERE ACUTE RESPIRATORY SYNDROME [None]
  - WHEEZING [None]
